FAERS Safety Report 11740151 (Version 2)
Quarter: 2015Q4

REPORT INFORMATION
  Report Type: Spontaneous
  Country: US (occurrence: US)
  Receive Date: 20151110
  Receipt Date: 20151120
  Transmission Date: 20160304
  Serious: No
  Sender: FDA-Public Use
  Company Number: US-ELI_LILLY_AND_COMPANY-US201208008868

PATIENT
  Age: 83 Year
  Sex: Female

DRUGS (1)
  1. FORTEO [Suspect]
     Active Substance: TERIPARATIDE
     Indication: OSTEOPOROSIS
     Dosage: 20 UG, QD
     Route: 065

REACTIONS (9)
  - Dysphonia [Recovered/Resolved]
  - Fatigue [Recovered/Resolved]
  - Malaise [Not Recovered/Not Resolved]
  - Parathyroid disorder [Unknown]
  - Blood alkaline phosphatase increased [Recovered/Resolved]
  - Memory impairment [Unknown]
  - Viral infection [Unknown]
  - Nasopharyngitis [Unknown]
  - Blood sodium increased [Unknown]

NARRATIVE: CASE EVENT DATE: 201208
